FAERS Safety Report 12861996 (Version 1)
Quarter: 2016Q4

REPORT INFORMATION
  Report Type: Spontaneous
  Country: US (occurrence: US)
  Receive Date: 20161018
  Receipt Date: 20161018
  Transmission Date: 20170207
  Serious: No
  Sender: FDA-Public Use
  Company Number: None

PATIENT
  Age: 83 Year
  Sex: Male

DRUGS (1)
  1. NINLARO [Suspect]
     Active Substance: IXAZOMIB
     Indication: PLASMA CELL MYELOMA IN REMISSION
     Dosage: TAKE DAYS 1, 8, 15
     Route: 048
     Dates: start: 20160621, end: 20160920

REACTIONS (2)
  - Herpes zoster [None]
  - Therapy cessation [None]

NARRATIVE: CASE EVENT DATE: 20161018
